FAERS Safety Report 6265310-4 (Version None)
Quarter: 2009Q3

REPORT INFORMATION
  Report Type: 
  Country: None (occurrence: None)
  Receive Date: 20090713
  Receipt Date: 20090709
  Transmission Date: 20100115
  Serious: Yes (Other)
  Sender: FDA-Public Use
  Company Number: GBWYE096228OCT05

PATIENT
  Age: 5 Year
  Sex: Male

DRUGS (5)
  1. IBUPROFEN [Suspect]
     Indication: PYREXIA
     Dosage: 100 MG EVERY 1 TOT
     Route: 054
  2. PREDNISOLONE [Concomitant]
     Dosage: UNKNOWN
  3. AZATHIOPRINE [Concomitant]
     Dosage: UNKNOWN
  4. ACETAMINOPHEN [Suspect]
     Indication: PYREXIA
     Dosage: UNKNOWN
  5. CYCLOSPORINE [Concomitant]
     Dosage: UNKNOWN

REACTIONS (4)
  - CONDITION AGGRAVATED [None]
  - NEPHROPATHY TOXIC [None]
  - PYREXIA [None]
  - RENAL FAILURE [None]
